FAERS Safety Report 8295798-9 (Version None)
Quarter: 2012Q2

REPORT INFORMATION
  Report Type: 
  Country: None (occurrence: None)
  Receive Date: 20120416
  Receipt Date: 20120416
  Transmission Date: 20120825
  Serious: Yes (Hospitalization)
  Sender: FDA-Public Use
  Company Number: None

PATIENT
  Sex: Male
  Weight: 108.3 kg

DRUGS (2)
  1. CYTARABINE [Suspect]
     Dosage: 1638 MG
     Dates: end: 20111031
  2. DAUNORUBICIN HCL [Suspect]
     Dosage: 420 MG
     Dates: end: 20111027

REACTIONS (10)
  - SEPTIC SHOCK [None]
  - NAUSEA [None]
  - SEPSIS [None]
  - SINUS TACHYCARDIA [None]
  - MALAISE [None]
  - TACHYPNOEA [None]
  - VOMITING [None]
  - ORTHOSTATIC HYPOTENSION [None]
  - MUSCULAR WEAKNESS [None]
  - BLOOD LACTIC ACID INCREASED [None]
